FAERS Safety Report 10754381 (Version 1)
Quarter: 2015Q1

REPORT INFORMATION
  Report Type: Spontaneous
  Country: US (occurrence: US)
  Receive Date: 20150202
  Receipt Date: 20150202
  Transmission Date: 20150721
  Serious: Yes (Other)
  Sender: FDA-Public Use
  Company Number: US-AUROBINDO-AUR-APL-2015-00644

PATIENT
  Age: 59 Year
  Sex: Female
  Weight: 72.56 kg

DRUGS (2)
  1. LOSARTAN POTASSIUM AND HYDROCHLOROTHIAZIDE TABLETS 100 MG/12.5 MG [Suspect]
     Active Substance: HYDROCHLOROTHIAZIDE\LOSARTAN POTASSIUM
     Indication: HYPERTENSION
     Dosage: 100/12.5 MG
     Route: 048
     Dates: start: 20150123, end: 20150125
  2. SYNTHROID [Concomitant]
     Active Substance: LEVOTHYROXINE SODIUM
     Indication: PRODUCT USED FOR UNKNOWN INDICATION
     Dosage: 125 ?G, UNK
     Route: 065

REACTIONS (4)
  - Nausea [Recovered/Resolved]
  - Abdominal distension [Recovered/Resolved]
  - Coeliac disease [Recovered/Resolved]
  - Abdominal pain upper [Recovered/Resolved]

NARRATIVE: CASE EVENT DATE: 20150123
